FAERS Safety Report 10989031 (Version 3)
Quarter: 2015Q3

REPORT INFORMATION
  Report Type: Spontaneous
  Country: US (occurrence: US)
  Receive Date: 20150406
  Receipt Date: 20150703
  Transmission Date: 20151125
  Serious: No
  Sender: FDA-Public Use
  Company Number: US-009507513-1503USA011211

PATIENT
  Age: 18 Year
  Sex: Female
  Weight: 89.8 kg

DRUGS (1)
  1. NEXPLANON [Suspect]
     Active Substance: ETONOGESTREL
     Indication: CONTRACEPTION
     Dosage: 68 MG/ ONE ROD, INSERTED EVERY THREE YEARS
     Route: 059
     Dates: start: 20150225, end: 20150317

REACTIONS (4)
  - Implant site pain [Recovered/Resolved]
  - Device expulsion [Recovered/Resolved]
  - Implant site infection [Recovered/Resolved]
  - Implant site scar [Recovered/Resolved]

NARRATIVE: CASE EVENT DATE: 201503
